FAERS Safety Report 4364583-2 (Version None)
Quarter: 2004Q2

REPORT INFORMATION
  Report Type: 
  Country: None (occurrence: None)
  Receive Date: 20040525
  Receipt Date: 20040504
  Transmission Date: 20050107
  Serious: Yes (Death)
  Sender: FDA-Public Use
  Company Number: WAES 0405TWN00002

PATIENT
  Age: 70 Year
  Sex: Male

DRUGS (6)
  1. CRIXIVAN [Suspect]
     Indication: HIV INFECTION
     Dosage: PO
     Route: 048
  2. ZIDOVUDINE [Suspect]
     Indication: HIV INFECTION
     Dosage: PO
     Route: 048
  3. ZALCITABINE [Suspect]
     Indication: HIV INFECTION
     Dosage: PO
     Route: 048
  4. DIDANOSINE [Suspect]
     Indication: HIV INFECTION
     Dosage: PO
     Route: 048
  5. STAVUDINE [Suspect]
     Indication: HIV INFECTION
     Dosage: PO
     Route: 048
  6. SAQUINAVIR [Suspect]
     Indication: HIV INFECTION
     Dosage: PO
     Route: 048

REACTIONS (9)
  - ANOREXIA [None]
  - CIRCULATORY COLLAPSE [None]
  - DIARRHOEA [None]
  - DYSPNOEA [None]
  - HEPATIC STEATOSIS [None]
  - LACTIC ACIDOSIS [None]
  - LIPODYSTROPHY ACQUIRED [None]
  - MITOCHONDRIAL TOXICITY [None]
  - NAUSEA [None]
